FAERS Safety Report 6655556-5 (Version None)
Quarter: 2010Q1

REPORT INFORMATION
  Report Type: 
  Country: None (occurrence: None)
  Receive Date: 20100329
  Receipt Date: 20100317
  Transmission Date: 20100710
  Serious: Yes (Other)
  Sender: FDA-Public Use
  Company Number: FR-PFIZER INC-2010034668

PATIENT

DRUGS (1)
  1. CELSENTRI [Suspect]
     Indication: HIV INFECTION

REACTIONS (3)
  - FATIGUE [None]
  - MYALGIA [None]
  - VERTIGO [None]
